FAERS Safety Report 12504653 (Version 4)
Quarter: 2016Q3

REPORT INFORMATION
  Report Type: Spontaneous
  Country: FR (occurrence: FR)
  Receive Date: 20160628
  Receipt Date: 20160906
  Transmission Date: 20161109
  Serious: Yes (Hospitalization)
  Sender: FDA-Public Use
  Company Number: FR-GE HEALTHCARE MEDICAL DIAGNOSTICS-VISP-PR-1606S-0374

PATIENT
  Age: 85 Year
  Sex: Male
  Weight: 81 kg

DRUGS (6)
  1. KRENOSIN [Suspect]
     Active Substance: ADENOSINE
     Dosage: DOSE NOT REPORTED
     Route: 022
     Dates: start: 20160526, end: 20160526
  2. VISIPAQUE [Suspect]
     Active Substance: IODIXANOL
     Indication: DIAGNOSTIC PROCEDURE
  3. ISOPTINE [Suspect]
     Active Substance: VERAPAMIL HYDROCHLORIDE
     Route: 042
     Dates: start: 20160526, end: 20160526
  4. RISORDAN [Suspect]
     Active Substance: ISOSORBIDE DINITRATE
     Route: 022
     Dates: start: 20160526, end: 20160526
  5. VISIPAQUE [Suspect]
     Active Substance: IODIXANOL
     Indication: PRODUCT USED FOR UNKNOWN INDICATION
     Route: 042
     Dates: start: 20160526, end: 20160526
  6. HEPARIN SODIUM. [Suspect]
     Active Substance: HEPARIN SODIUM
     Route: 042
     Dates: start: 20160526, end: 20160526

REACTIONS (3)
  - Chills [Recovered/Resolved]
  - Sepsis syndrome [Unknown]
  - Hyperthermia [Recovered/Resolved]

NARRATIVE: CASE EVENT DATE: 20160526
